FAERS Safety Report 18841242 (Version 1)
Quarter: 2021Q1

REPORT INFORMATION
  Report Type: Spontaneous
  Country: CA (occurrence: CA)
  Receive Date: 20210203
  Receipt Date: 20210203
  Transmission Date: 20210419
  Serious: Yes (Death)
  Sender: FDA-Public Use
  Company Number: CA-PFIZER INC-2021099567

PATIENT
  Age: 11 Year
  Sex: Male
  Weight: 25 kg

DRUGS (13)
  1. HYDROMORPHONE HYDROCHLORIDE. [Suspect]
     Active Substance: HYDROMORPHONE HYDROCHLORIDE
     Indication: PAIN
     Dosage: UNK
  2. LORBRENA [Suspect]
     Active Substance: LORLATINIB
     Indication: NEUROBLASTOMA RECURRENT
     Dosage: 100 MG, 1X/DAY
     Route: 048
  3. UNITUXIN [Suspect]
     Active Substance: DINUTUXIMAB
     Indication: METASTASES TO BONE
  4. METHADONE HYDROCHLORIDE. [Suspect]
     Active Substance: METHADONE HYDROCHLORIDE
     Indication: PAIN
     Dosage: UNK
  5. GABAPENTIN. [Suspect]
     Active Substance: GABAPENTIN
     Indication: PAIN
     Dosage: UNK
  6. CANNABIDIOL [Suspect]
     Active Substance: CANNABIDIOL
     Indication: PAIN
     Dosage: UNK
  7. TEMOZOLOMIDE. [Suspect]
     Active Substance: TEMOZOLOMIDE
     Indication: NEUROBLASTOMA RECURRENT
     Dosage: UNK
  8. UNITUXIN [Suspect]
     Active Substance: DINUTUXIMAB
     Indication: NEUROBLASTOMA RECURRENT
     Dosage: UNK UNK, CYCLIC
     Route: 042
  9. IRINOTECAN HCL [Suspect]
     Active Substance: IRINOTECAN HYDROCHLORIDE
     Indication: NEUROBLASTOMA RECURRENT
     Dosage: UNK
  10. LORAZEPAM. [Suspect]
     Active Substance: LORAZEPAM
     Indication: ANXIETY
     Dosage: UNK
     Route: 042
  11. UNITUXIN [Suspect]
     Active Substance: DINUTUXIMAB
     Indication: METASTASES TO LIVER
  12. DEXAMETHASONE SODIUM PHOSPHATE. [Suspect]
     Active Substance: DEXAMETHASONE SODIUM PHOSPHATE
     Indication: NEOPLASM PROGRESSION
     Dosage: UNK
  13. FAMOTIDINE. [Suspect]
     Active Substance: FAMOTIDINE
     Indication: GASTRIC DISORDER
     Dosage: UNK

REACTIONS (12)
  - Nerve compression [Fatal]
  - Off label use [Unknown]
  - Metastases to spine [Fatal]
  - Pallor [Fatal]
  - Retro-orbital neoplasm [Fatal]
  - Malignant cranial nerve neoplasm [Fatal]
  - Anaemia [Fatal]
  - Leukocytosis [Fatal]
  - Metastases to liver [Fatal]
  - Thrombocytopenia [Fatal]
  - Neuroblastoma recurrent [Fatal]
  - Fatigue [Fatal]
